FAERS Safety Report 7779720-7 (Version None)
Quarter: 2011Q3

REPORT INFORMATION
  Report Type: 
  Country: None (occurrence: None)
  Receive Date: 20110927
  Receipt Date: 20110921
  Transmission Date: 20111222
  Serious: Yes (Other)
  Sender: FDA-Public Use
  Company Number: ES-PFIZER INC-2011224866

PATIENT
  Age: 91 Year
  Sex: Male

DRUGS (2)
  1. LYRICA [Suspect]
     Dosage: 25 MG, 2X/DAY
  2. LYRICA [Suspect]
     Dosage: 150 MG, 2X/DAY

REACTIONS (1)
  - PARAPARESIS [None]
